FAERS Safety Report 19904276 (Version 12)
Quarter: 2024Q1

REPORT INFORMATION
  Report Type: Spontaneous
  Country: US (occurrence: US)
  Receive Date: 20211001
  Receipt Date: 20240131
  Transmission Date: 20240410
  Serious: No
  Sender: FDA-Public Use
  Company Number: US-PFIZER INC-202100993403

PATIENT
  Age: 70 Year
  Sex: Female

DRUGS (1)
  1. IBRANCE [Suspect]
     Active Substance: PALBOCICLIB
     Indication: Breast cancer stage IV
     Dosage: DAILY ON DAYS 1-21 OF EACH 28-DAY CYCLE, WHOLE WITH WATER/WITH OR WITHOUT FOOD
     Route: 048
     Dates: start: 2020

REACTIONS (5)
  - Insomnia [Recovering/Resolving]
  - Influenza like illness [Unknown]
  - Pyrexia [Unknown]
  - Memory impairment [Unknown]
  - Product dose omission issue [Unknown]
